FAERS Safety Report 8361130-5 (Version None)
Quarter: 2012Q1

REPORT INFORMATION
  Report Type: 
  Country: None (occurrence: None)
  Receive Date: 20120323
  Receipt Date: 20110808
  Transmission Date: 20120608
  Serious: Yes (Hospitalization, Other)
  Sender: FDA-Public Use
  Company Number: 163-21880-11040677

PATIENT
  Age: 77 Year
  Sex: Female

DRUGS (13)
  1. NEUPOGEN (FILGRASTIM) (UNKNOWN) [Concomitant]
  2. NORVASC [Concomitant]
  3. NOVOLOG (INSULIN ASPART)(UNKNOWN) [Concomitant]
  4. CALCITONIN (CALCITOCALCITONIN (CALCITONIN) (UNKNOWN) [Concomitant]
  5. LASIX [Concomitant]
  6. DIGOXIN [Concomitant]
  7. VALTREX (VALACICLOVIR HYDROCHLORIDE)(UNKNOWN) [Concomitant]
  8. PREDNISONE [Concomitant]
  9. ASPART (INSULIN ASPART)(UNKNOWN) [Concomitant]
  10. REVLIMID [Suspect]
     Indication: MULTIPLE MYELOMA
     Dosage: 10 MG, DAILY, PO
     Route: 048
     Dates: start: 20110301, end: 20110301
  11. SPIRIVA (TIOTROPIUM BROMIDE)(UNKNOWN) [Concomitant]
  12. PAMIDRONATE (PAMIDRONATE DISODIUM ) (UNKNOWN) [Concomitant]
  13. ADVAIR (SERETIDE MITE)(UNKNOWN) [Concomitant]

REACTIONS (6)
  - DEHYDRATION [None]
  - CHILLS [None]
  - URINE OUTPUT DECREASED [None]
  - ANAEMIA [None]
  - DYSPHAGIA [None]
  - ABDOMINAL PAIN [None]
